FAERS Safety Report 6594104-5 (Version None)
Quarter: 2010Q1

REPORT INFORMATION
  Report Type: 
  Country: None (occurrence: None)
  Receive Date: 20100222
  Receipt Date: 20100217
  Transmission Date: 20100710
  Serious: Yes (Other)
  Sender: FDA-Public Use
  Company Number: CA-ROCHE-678679

PATIENT
  Sex: Female

DRUGS (9)
  1. BLINDED BEVACIZUMAB [Suspect]
     Dosage: LAST DOSE PRIOR TO SAE ON 2 NOV 2009, DOSE FORM : VIAL,  THERAPY PERMANENTLY DISCONTINUED.
     Route: 042
     Dates: start: 20070111, end: 20091102
  2. ENALAPRIL MALEATE [Suspect]
     Indication: DRUG USE FOR UNKNOWN INDICATION
     Dosage: DRUG NAME: VASOTEC.
     Route: 065
     Dates: end: 20091201
  3. DIOVAN [Suspect]
     Indication: DRUG USE FOR UNKNOWN INDICATION
     Route: 065
     Dates: start: 20080717, end: 20091217
  4. HYDROCHLOROTHIAZIDE [Concomitant]
     Dates: start: 20080101, end: 20091217
  5. EFFEXOR XR [Concomitant]
     Dates: start: 20090119
  6. ADALAT CC [Concomitant]
     Dates: start: 20071201
  7. NOVO-METOPROL [Concomitant]
     Dates: start: 20080107
  8. ENALAPRIL MALEATE [Concomitant]
     Dosage: DRUG NAME APOENALAPRIL
     Dates: start: 20081124, end: 20091217
  9. GABAPENTIN [Concomitant]
     Dosage: DRUG NAME NERO GABAPENTIN.
     Dates: start: 20010101, end: 20090917

REACTIONS (1)
  - BLOOD CREATININE INCREASED [None]
